FAERS Safety Report 14299756 (Version 1)
Quarter: 2017Q4

REPORT INFORMATION
  Report Type: Spontaneous
  Country: FR (occurrence: FR)
  Receive Date: 20171219
  Receipt Date: 20171219
  Transmission Date: 20180321
  Serious: Yes (Other)
  Sender: FDA-Public Use
  Company Number: FR-MERCK KGAA-2037357

PATIENT
  Age: 40 Year
  Sex: Female

DRUGS (6)
  1. LEVOTHYROX NF [Suspect]
     Active Substance: LEVOTHYROXINE SODIUM
     Dates: start: 20170923
  2. LEVOTHYROX NF [Suspect]
     Active Substance: LEVOTHYROXINE SODIUM
     Dates: start: 20170915
  3. LEVOTHYROX NF [Suspect]
     Active Substance: LEVOTHYROXINE SODIUM
     Dates: start: 20170930
  4. LEVOTHYROX NF [Suspect]
     Active Substance: LEVOTHYROXINE SODIUM
     Dates: start: 20171018
  5. NOVOTHYROX [Suspect]
     Active Substance: LEVOTHYROXINE SODIUM
     Indication: POST PROCEDURAL HYPOTHYROIDISM
     Dates: start: 201706
  6. LEVOTHYROX NF [Suspect]
     Active Substance: LEVOTHYROXINE SODIUM
     Dates: start: 20171018

REACTIONS (21)
  - Psychiatric symptom [None]
  - Depression [None]
  - Muscle contracture [None]
  - Libido decreased [None]
  - Impatience [None]
  - Insomnia [None]
  - Diarrhoea [None]
  - Pain [None]
  - Back pain [None]
  - Muscle spasms [None]
  - Fatigue [None]
  - Neck pain [None]
  - Constipation [None]
  - Headache [None]
  - Arthralgia [None]
  - Gastrointestinal disorder [None]
  - Sleep disorder [None]
  - Social avoidant behaviour [None]
  - Vertigo [None]
  - Alopecia [None]
  - Disturbance in attention [None]

NARRATIVE: CASE EVENT DATE: 2017
